FAERS Safety Report 13118084 (Version 1)
Quarter: 2017Q1

REPORT INFORMATION
  Report Type: Spontaneous
  Country: US (occurrence: US)
  Receive Date: 20170116
  Receipt Date: 20170116
  Transmission Date: 20170428
  Serious: No
  Sender: FDA-Public Use
  Company Number: US-JNJFOC-20150900849

PATIENT
  Sex: Male

DRUGS (4)
  1. RISPERDAL [Suspect]
     Active Substance: RISPERIDONE
     Indication: BIPOLAR DISORDER
     Dosage: VARYING DOSE OF 0.25 MG TO 0.5 MG
     Route: 048
     Dates: start: 2001, end: 2006
  2. RISPERDAL [Suspect]
     Active Substance: RISPERIDONE
     Indication: ATTENTION DEFICIT/HYPERACTIVITY DISORDER
     Dosage: VARYING DOSE OF 0.25 MG TO 0.5 MG
     Route: 048
     Dates: start: 2000, end: 20060617
  3. RISPERDAL [Suspect]
     Active Substance: RISPERIDONE
     Indication: ATTENTION DEFICIT/HYPERACTIVITY DISORDER
     Dosage: VARYING DOSE OF 0.25 MG TO 0.5 MG
     Route: 048
     Dates: start: 2001, end: 2006
  4. RISPERDAL [Suspect]
     Active Substance: RISPERIDONE
     Indication: BIPOLAR DISORDER
     Dosage: VARYING DOSE OF 0.25 MG TO 0.5 MG
     Route: 048
     Dates: start: 2000, end: 20060617

REACTIONS (9)
  - Enuresis [Unknown]
  - General physical condition abnormal [Unknown]
  - Hallucination, visual [Unknown]
  - Gynaecomastia [Unknown]
  - Tic [Unknown]
  - Headache [Unknown]
  - Depression [Unknown]
  - Overweight [Unknown]
  - Delayed puberty [Unknown]

NARRATIVE: CASE EVENT DATE: 2001
